FAERS Safety Report 8388729-4 (Version None)
Quarter: 2012Q2

REPORT INFORMATION
  Report Type: 
  Country: None (occurrence: None)
  Receive Date: 20120528
  Receipt Date: 20120515
  Transmission Date: 20120825
  Serious: Yes (Other)
  Sender: FDA-Public Use
  Company Number: GB-BRISTOL-MYERS SQUIBB COMPANY-16607376

PATIENT
  Age: 31 Year
  Sex: Female

DRUGS (2)
  1. TRANEXAMIC ACID [Concomitant]
     Indication: COAGULATION TIME PROLONGED
     Route: 048
  2. METFORMIN HCL [Suspect]
     Indication: GESTATIONAL DIABETES

REACTIONS (3)
  - OLIGOHYDRAMNIOS [None]
  - LIVE BIRTH [None]
  - PREGNANCY [None]
